FAERS Safety Report 18664365 (Version 1)
Quarter: 2020Q4

REPORT INFORMATION
  Report Type: Spontaneous
  Country: DE (occurrence: DE)
  Receive Date: 20201225
  Receipt Date: 20201225
  Transmission Date: 20210114
  Serious: Yes (Hospitalization)
  Sender: FDA-Public Use
  Company Number: DE-TEVA-2020-DE-1860870

PATIENT
  Age: 55 Year
  Sex: Male

DRUGS (16)
  1. ATORVASTATIN [Concomitant]
     Active Substance: ATORVASTATIN
     Dosage: 20 MILLIGRAM DAILY;  0-0-1-0
  2. METOPROLOL. [Concomitant]
     Active Substance: METOPROLOL
     Dosage: 95 MG, 1-0-0.5-0
  3. ALLOPURINOL. [Concomitant]
     Active Substance: ALLOPURINOL
     Dosage: 300 MILLIGRAM DAILY;  0-1-0-0
  4. SEMAGLUTIDE [Concomitant]
     Active Substance: SEMAGLUTIDE
     Dosage: 1 MG / WEEK, 1X
  5. DULOXETIN [Suspect]
     Active Substance: DULOXETINE
     Dosage: 30 MILLIGRAM DAILY; 1-0-0-0
  6. FOLIC ACID. [Concomitant]
     Active Substance: FOLIC ACID
     Dosage: 5 MILLIGRAM DAILY;  1-0-0-0
  7. INSULIN LISPRO [Concomitant]
     Active Substance: INSULIN LISPRO
     Dosage: ACCORDING TO INSULIN SCHEDULE
     Route: 058
  8. BENFOTIAMIN [Concomitant]
     Dosage: 300 MILLIGRAM DAILY;  1-0-0-0
  9. SPIRONOLACTON [Concomitant]
     Active Substance: SPIRONOLACTONE
     Dosage: 50 MILLIGRAM DAILY;   0-1-0-0
  10. COLECALCIFEROL (VITAMIN D) [Concomitant]
     Dosage: 20,000 IU / WEEK, 1X
  11. INSULIN GLARGINE [Concomitant]
     Active Substance: INSULIN GLARGINE
     Dosage: ACCORDING TO INSULIN SCHEDULE
     Route: 058
  12. EMPAGLIFLOZIN [Concomitant]
     Active Substance: EMPAGLIFLOZIN
     Dosage: 25 MILLIGRAM DAILY;  1-0-0-0
  13. ASS 100 [Concomitant]
     Active Substance: ASPIRIN
     Dosage: 100 MILLIGRAM DAILY;  0-1-0-0
  14. RAMIPRIL. [Concomitant]
     Active Substance: RAMIPRIL
     Dosage: 10 MILLIGRAM DAILY;  1-0-1-0
  15. TORASEMID [Concomitant]
     Active Substance: TORSEMIDE
     Dosage: 1.5 DOSAGE FORMS DAILY; 10 MG, 0-1.5-0-0
  16. PANTOPRAZOL [Concomitant]
     Active Substance: PANTOPRAZOLE SODIUM
     Dosage: 40 MILLIGRAM DAILY;  0-0-1-0

REACTIONS (4)
  - Dizziness [Unknown]
  - Condition aggravated [Unknown]
  - Electrocardiogram abnormal [Unknown]
  - Fall [Unknown]
